FAERS Safety Report 4475993-7 (Version None)
Quarter: 2004Q3

REPORT INFORMATION
  Report Type: 
  Country: None (occurrence: None)
  Receive Date: 20040923
  Receipt Date: 20040618
  Transmission Date: 20050211
  Serious: No
  Sender: FDA-Public Use
  Company Number: USA040670548

PATIENT
  Age: 74 Year
  Sex: Female

DRUGS (1)
  1. FORTEO [Suspect]
     Indication: OSTEOPOROSIS
     Dates: start: 20030101

REACTIONS (3)
  - DIVERTICULUM [None]
  - GASTROOESOPHAGEAL REFLUX DISEASE [None]
  - INJECTION SITE ERYTHEMA [None]
